FAERS Safety Report 19280300 (Version 1)
Quarter: 2021Q2

REPORT INFORMATION
  Report Type: Spontaneous
  Country: US (occurrence: US)
  Receive Date: 20210520
  Receipt Date: 20210520
  Transmission Date: 20210717
  Serious: Yes (Other)
  Sender: FDA-Public Use
  Company Number: US-GLENMARK PHARMACEUTICALS-2021GMK053633

PATIENT

DRUGS (7)
  1. RANITIDINE TABLETS USP, 150 MG [Suspect]
     Active Substance: RANITIDINE HYDROCHLORIDE
     Indication: DYSPEPSIA
     Dosage: 150 MILLIGRAM, OD
     Route: 048
     Dates: start: 2017, end: 2020
  2. OMEPRAZOLE. [Concomitant]
     Active Substance: OMEPRAZOLE
     Indication: PRODUCT USED FOR UNKNOWN INDICATION
     Dosage: UNK
     Route: 065
  3. ATORVASTATIN [Concomitant]
     Active Substance: ATORVASTATIN
     Indication: BLOOD CHOLESTEROL ABNORMAL
     Dosage: UNK
     Route: 048
  4. OXYBUTYNIN. [Concomitant]
     Active Substance: OXYBUTYNIN CHLORIDE
     Indication: PROSTATOMEGALY
     Dosage: UNK
     Route: 048
  5. RANITIDINE TABLETS USP, 150 MG [Suspect]
     Active Substance: RANITIDINE HYDROCHLORIDE
     Indication: GASTROOESOPHAGEAL REFLUX DISEASE
     Dosage: 150 MILLIGRAM, OD (ONCE DAILY IN THE EVENING)
     Route: 048
     Dates: start: 202102, end: 20210415
  6. FINASTERIDE. [Concomitant]
     Active Substance: FINASTERIDE
     Indication: PROSTATOMEGALY
     Dosage: UNK
     Route: 048
  7. TAMSULOSIN [Concomitant]
     Active Substance: TAMSULOSIN
     Indication: PROSTATOMEGALY
     Dosage: UNK
     Route: 048

REACTIONS (7)
  - Product impurity [Unknown]
  - Choking [Unknown]
  - Treatment noncompliance [Unknown]
  - Gastrooesophageal reflux disease [Not Recovered/Not Resolved]
  - Dyspepsia [Not Recovered/Not Resolved]
  - Expired product administered [Unknown]
  - Product contamination [Unknown]

NARRATIVE: CASE EVENT DATE: 2021
